FAERS Safety Report 10818375 (Version 12)
Quarter: 2016Q1

REPORT INFORMATION
  Report Type: Report from Study
  Country: JP (occurrence: JP)
  Receive Date: 20150218
  Receipt Date: 20160212
  Transmission Date: 20160525
  Serious: Yes (Hospitalization, Other)
  Sender: FDA-Public Use
  Company Number: JP-B.I. PHARMACEUTICALS,INC./RIDGEFIELD-2014-BI-52953NB

PATIENT
  Age: 41 Year
  Sex: Male
  Weight: 72 kg

DRUGS (9)
  1. GILOTRIF [Suspect]
     Active Substance: AFATINIB
     Indication: LUNG ADENOCARCINOMA
     Dosage: 40 MG
     Route: 048
     Dates: start: 20141028, end: 20141104
  2. RANMARK [Concomitant]
     Active Substance: DENOSUMAB
     Indication: PROPHYLAXIS
     Dosage: 360 MG
     Route: 058
     Dates: start: 20141128
  3. GILOTRIF [Suspect]
     Active Substance: AFATINIB
     Dosage: 30 MG
     Route: 048
     Dates: start: 20141118, end: 20150130
  4. ASPARA-CA [Concomitant]
     Active Substance: CALCIUM ASPARTATE
     Indication: PROPHYLAXIS
     Dosage: 1200 MG
     Route: 048
     Dates: start: 20141128, end: 20141212
  5. ALFACALCIDOL [Concomitant]
     Active Substance: ALFACALCIDOL
     Indication: PROPHYLAXIS
     Dosage: 1 MG
     Route: 048
     Dates: start: 20141128, end: 20141212
  6. GILOTRIF [Suspect]
     Active Substance: AFATINIB
     Route: 048
     Dates: start: 20150327
  7. NEXIUM [Concomitant]
     Active Substance: ESOMEPRAZOLE MAGNESIUM
     Indication: PROPHYLAXIS
     Dosage: 20 MG
     Route: 048
     Dates: start: 20141105
  8. GILOTRIF [Suspect]
     Active Substance: AFATINIB
     Dosage: 20 MG
     Route: 048
     Dates: start: 20150131, end: 20150306
  9. DENOTAS [Concomitant]
     Active Substance: CALCIUM CARBONATE\CHOLECALCIFEROL\MAGNESIUM CARBONATE
     Indication: PROPHYLAXIS
     Route: 048
     Dates: start: 20141213

REACTIONS (15)
  - Stomatitis [Not Recovered/Not Resolved]
  - Dermatitis acneiform [Recovered/Resolved]
  - Headache [Recovered/Resolved]
  - Aspartate aminotransferase increased [Recovered/Resolved]
  - Alanine aminotransferase increased [Recovered/Resolved]
  - Hyperphosphatasaemia [Recovered/Resolved]
  - Gamma-glutamyltransferase increased [Recovered/Resolved]
  - Back pain [Not Recovered/Not Resolved]
  - Hyperbilirubinaemia [Recovered/Resolved]
  - Paronychia [Recovered/Resolved]
  - Dizziness [Recovered/Resolved]
  - Hyperkalaemia [Recovered/Resolved]
  - Diarrhoea [Recovered/Resolved]
  - Malaise [Recovered/Resolved]
  - Dermatitis acneiform [Recovered/Resolved]

NARRATIVE: CASE EVENT DATE: 20141029
